FAERS Safety Report 8482903 (Version 5)
Quarter: 2012Q4

REPORT INFORMATION
  Report Type: 
  Country: BR (occurrence: BR)
  Receive Date: 20120329
  Receipt Date: 20121026
  Transmission Date: 20130627
  Serious: Yes (Death, Hospitalization)
  Sender: FDA-Public Use
  Company Number: BR-PFIZER INC-2012058454

PATIENT
  Age: 49 Year
  Sex: Male
  Weight: 72 kg

DRUGS (4)
  1. SUTENT [Suspect]
     Indication: RENAL CANCER
     Dosage: 50 mg, 1x/day
     Route: 048
     Dates: start: 20120214
  2. HEPARIN [Concomitant]
     Dosage: UNK
  3. LORAZEPAM [Concomitant]
     Dosage: UNK
  4. DIMORF [Concomitant]
     Dosage: 6 tablets daily

REACTIONS (7)
  - Death [Fatal]
  - Respiratory disorder [Not Recovered/Not Resolved]
  - Oxygen saturation decreased [Not Recovered/Not Resolved]
  - Pain [Not Recovered/Not Resolved]
  - Renal haemorrhage [Unknown]
  - Fatigue [Unknown]
  - Flatulence [Not Recovered/Not Resolved]
